FAERS Safety Report 11540884 (Version 1)
Quarter: 2015Q3

REPORT INFORMATION
  Report Type: Spontaneous
  Country: US (occurrence: US)
  Receive Date: 20150923
  Receipt Date: 20150923
  Transmission Date: 20151125
  Serious: No
  Sender: FDA-Public Use
  Company Number: US-BAYER-2015-421540

PATIENT
  Age: 64 Year
  Sex: Female
  Weight: 73.92 kg

DRUGS (13)
  1. NEXIUM [Concomitant]
     Active Substance: ESOMEPRAZOLE MAGNESIUM
  2. RESTASIS [Concomitant]
     Active Substance: CYCLOSPORINE
  3. TESTOSTERONE. [Concomitant]
     Active Substance: TESTOSTERONE
  4. CHILDREN CLARITIN ALLERGY [Suspect]
     Active Substance: LORATADINE
     Indication: INJECTION SITE REACTION
     Dosage: 1 DF, ONCE
     Route: 048
     Dates: start: 20150831, end: 20150831
  5. PROGESTERONE. [Concomitant]
     Active Substance: PROGESTERONE
  6. GABAPENTIN. [Concomitant]
     Active Substance: GABAPENTIN
  7. ARMOUR THYROID [Concomitant]
     Active Substance: THYROID, PORCINE\THYROID, UNSPECIFIED
  8. CYCLOBENZAPRINE [Concomitant]
     Active Substance: CYCLOBENZAPRINE
  9. CHILDREN CLARITIN ALLERGY [Suspect]
     Active Substance: LORATADINE
     Indication: INJECTION SITE REACTION
     Dosage: 1 DF, PRN, DF=TEASPOON
     Route: 048
     Dates: start: 201505
  10. FLURBIPROFEN. [Concomitant]
     Active Substance: FLURBIPROFEN
  11. ESTROGEN [Concomitant]
     Active Substance: ESTRONE\SUS SCROFA OVARY
  12. CLARITIN [Suspect]
     Active Substance: LORATADINE
     Indication: SEASONAL ALLERGY
     Dosage: 1 DF, PRN
     Route: 048
     Dates: end: 2014
  13. CHILDREN CLARITIN ALLERGY [Suspect]
     Active Substance: LORATADINE
     Indication: INJECTION SITE REACTION
     Dosage: 2 DF, PRN, DF=TEASPOON
     Route: 048
     Dates: start: 201509, end: 201509

REACTIONS (6)
  - Flushing [Recovered/Resolved]
  - Hiccups [Recovered/Resolved]
  - Product use issue [None]
  - Drug ineffective [None]
  - Gastrooesophageal reflux disease [Recovered/Resolved]
  - Dizziness [Recovered/Resolved]

NARRATIVE: CASE EVENT DATE: 2014
